FAERS Safety Report 10090581 (Version 1)
Quarter: 2014Q2

REPORT INFORMATION
  Report Type: Report from Study
  Country: DE (occurrence: DE)
  Receive Date: 20140421
  Receipt Date: 20140421
  Transmission Date: 20141212
  Serious: Yes (Hospitalization)
  Sender: FDA-Public Use
  Company Number: DE-JNJFOC-20140410546

PATIENT
  Age: 16 Year
  Sex: Male
  Weight: 62.4 kg

DRUGS (5)
  1. INFLIXIMAB, RECOMBINANT [Suspect]
     Indication: CROHN^S DISEASE
     Route: 042
     Dates: start: 20100217, end: 20130404
  2. HUMIRA [Concomitant]
     Route: 065
     Dates: start: 20130416
  3. 5-ASA [Concomitant]
     Route: 065
  4. JODID [Concomitant]
     Route: 065
  5. ZINC [Concomitant]
     Route: 065

REACTIONS (1)
  - Crohn^s disease [Recovered/Resolved]
